FAERS Safety Report 5264620-7 (Version None)
Quarter: 2007Q1

REPORT INFORMATION
  Report Type: 
  Country: None (occurrence: None)
  Receive Date: 20070314
  Receipt Date: 20070305
  Transmission Date: 20070707
  Serious: Yes (Other)
  Sender: FDA-Public Use
  Company Number: PHNU2007DE01084

PATIENT
  Sex: Male

DRUGS (4)
  1. AREDIA [Suspect]
     Indication: PLASMACYTOMA
     Dosage: 1 DF, QMO
     Route: 042
  2. ZOMETA [Suspect]
     Indication: MULTIPLE MYELOMA
     Dosage: 4 MG, QMO
     Route: 042
  3. ANTIHYPERTENSIVE DRUGS [Concomitant]
     Route: 065
  4. LIPID MODIFYING AGENTS [Concomitant]
     Route: 065

REACTIONS (2)
  - LOOSE TOOTH [None]
  - TOOTH EXTRACTION [None]
